FAERS Safety Report 24155890 (Version 2)
Quarter: 2024Q3

REPORT INFORMATION
  Report Type: Spontaneous
  Country: JP (occurrence: JP)
  Receive Date: 20240731
  Receipt Date: 20240807
  Transmission Date: 20241016
  Serious: Yes (Death, Hospitalization, Other)
  Sender: ALKEM
  Company Number: JP-ALKEM LABORATORIES LIMITED-JP-ALKEM-2024-16607

PATIENT
  Age: 45 Year
  Sex: Female
  Weight: 90 kg

DRUGS (1)
  1. METFORMIN HYDROCHLORIDE [Suspect]
     Active Substance: METFORMIN HYDROCHLORIDE
     Indication: Diabetes mellitus
     Dosage: 2 GRAM, QD (71 GRAM INGESTED APPROXIMATELY)
     Route: 065

REACTIONS (9)
  - Hypoxic-ischaemic encephalopathy [Fatal]
  - Altered state of consciousness [Unknown]
  - Cardiac arrest [Unknown]
  - Seizure [Unknown]
  - Overdose [Unknown]
  - Toxicity to various agents [Fatal]
  - Lactic acidosis [Unknown]
  - Shock [Fatal]
  - Hypotension [Unknown]
